FAERS Safety Report 8843493 (Version 2)
Quarter: 2012Q4

REPORT INFORMATION
  Report Type: Report from Study
  Country: LV (occurrence: LV)
  Receive Date: 20121016
  Receipt Date: 20121030
  Transmission Date: 20130627
  Serious: Yes (Hospitalization)
  Sender: FDA-Public Use
  Company Number: LV-INCYTE CORPORATION-2012IN002019

PATIENT
  Age: 75 Year
  Sex: Female

DRUGS (9)
  1. INC424 [Suspect]
     Indication: MYELOFIBROSIS
     Dosage: 20 mg, bid
     Dates: start: 20120917, end: 20121003
  2. CONCOR [Concomitant]
     Dosage: UNK
     Dates: start: 20070402, end: 20121003
  3. OMEPRAZOLE [Concomitant]
     Dosage: UNK
     Dates: start: 20070402, end: 20121003
  4. PREDUCTAL [Concomitant]
     Dosage: UNK
     Dates: start: 20070402, end: 20121003
  5. ALLOPURINOL [Concomitant]
     Dosage: UNK
     Dates: start: 20070402, end: 20121003
  6. SINEMET [Concomitant]
     Dosage: UNK
     Dates: start: 20120425
  7. BERLOCID [Concomitant]
  8. PRESTARIUM [Concomitant]
     Dosage: UNK
     Dates: start: 20070402, end: 20121003
  9. ASPIRIN [Concomitant]
     Dosage: UNK
     Dates: start: 20070402, end: 20121003

REACTIONS (1)
  - Pyelonephritis chronic [Recovered/Resolved]
